FAERS Safety Report 9720320 (Version 2)
Quarter: 2014Q1

REPORT INFORMATION
  Report Type: Spontaneous
  Country: US (occurrence: US)
  Receive Date: 20131129
  Receipt Date: 20140220
  Transmission Date: 20141002
  Serious: No
  Sender: FDA-Public Use
  Company Number: US-009507513-1311USA008871

PATIENT
  Age: 58 Year
  Sex: Male

DRUGS (10)
  1. REBETOL [Suspect]
     Indication: HEPATITIS C
     Dosage: 200 MG, 3 AM AND PM (TWICE A DAY)
     Route: 048
     Dates: start: 20131122
  2. PEGINTRON [Suspect]
     Indication: HEPATITIS C
     Dosage: 0.5 DF, QW
     Route: 058
     Dates: start: 20131122
  3. FOLIC ACID [Concomitant]
     Dosage: 1 DF, QD
  4. DOFETILIDE [Concomitant]
     Dosage: 1 DF, BID
  5. CARVEDILOL [Concomitant]
     Dosage: 1 DF, BID
  6. FUROSEMIDE [Concomitant]
     Dosage: 1 DF, BID
  7. PRINIVIL [Concomitant]
     Dosage: 0.5 DF, QD
  8. POTASSIUM CHLORIDE [Concomitant]
     Dosage: 1 DF, QD
  9. SPIRONOLACTONE [Concomitant]
     Dosage: 1 DAILY
  10. ASPIRIN [Concomitant]
     Dosage: UNK, PRN

REACTIONS (11)
  - Feeling abnormal [Unknown]
  - Influenza like illness [Unknown]
  - Headache [Unknown]
  - Dyspnoea [Unknown]
  - Fatigue [Unknown]
  - Hypotension [Unknown]
  - Dizziness [Unknown]
  - Decreased appetite [Unknown]
  - Somnolence [Unknown]
  - Pallor [Unknown]
  - Malaise [Unknown]
